FAERS Safety Report 4505547-5 (Version None)
Quarter: 2004Q4

REPORT INFORMATION
  Report Type: 
  Country: None (occurrence: None)
  Receive Date: 20041119
  Receipt Date: 20040907
  Transmission Date: 20050328
  Serious: No
  Sender: FDA-Public Use
  Company Number: US-GLAXOSMITHKLINE-A0524729A

PATIENT
  Age: 63 Year
  Sex: Male

DRUGS (2)
  1. AVODART [Suspect]
     Indication: BENIGN PROSTATIC HYPERPLASIA
     Dosage: .5MG VARIABLE DOSE
     Route: 048
     Dates: start: 20040201
  2. CARDURA [Concomitant]

REACTIONS (8)
  - BREAST MASS [None]
  - BREAST PAIN [None]
  - EJACULATION FAILURE [None]
  - GYNAECOMASTIA [None]
  - HYPERTROPHY BREAST [None]
  - PARAESTHESIA [None]
  - PRURITUS [None]
  - THERAPY NON-RESPONDER [None]
